FAERS Safety Report 4331692-3 (Version None)
Quarter: 2004Q2

REPORT INFORMATION
  Report Type: 
  Country: None (occurrence: None)
  Receive Date: 20040405
  Receipt Date: 20030212
  Transmission Date: 20050107
  Serious: No
  Sender: FDA-Public Use
  Company Number: US-GLAXOSMITHKLINE-A0396672A

PATIENT
  Age: 62 Year
  Sex: Female
  Weight: 89.1 kg

DRUGS (7)
  1. FLOVENT [Suspect]
     Indication: ILL-DEFINED DISORDER
     Route: 055
     Dates: start: 20030204, end: 20030206
  2. OXYCONTIN [Concomitant]
     Indication: PAIN
     Dosage: 20MG TWICE PER DAY
     Route: 048
  3. ALBUTEROL [Concomitant]
     Route: 055
  4. GLUCOPHAGE [Concomitant]
     Dosage: 500MG TWICE PER DAY
     Route: 048
  5. DESYREL [Concomitant]
     Dosage: 75MG AT NIGHT
     Route: 048
  6. LOTREL [Concomitant]
     Route: 048
  7. LIPITOR [Concomitant]
     Dosage: 40MG TWICE PER DAY
     Route: 048

REACTIONS (1)
  - COUGH [None]
